FAERS Safety Report 20737710 (Version 3)
Quarter: 2022Q2

REPORT INFORMATION
  Report Type: Spontaneous
  Country: US (occurrence: US)
  Receive Date: 20220422
  Receipt Date: 20220430
  Transmission Date: 20220720
  Serious: No
  Sender: FDA-Public Use
  Company Number: US-UNITED THERAPEUTICS-UNT-2022-008319

PATIENT
  Age: 61 Year
  Sex: Female
  Weight: 112.93 kg

DRUGS (1)
  1. TYVASO [Suspect]
     Active Substance: TREPROSTINIL
     Indication: Pulmonary arterial hypertension
     Dosage: 18-54 ?G, QID
     Dates: start: 20220413

REACTIONS (8)
  - Muscle tightness [Unknown]
  - Dizziness [Unknown]
  - Headache [Recovered/Resolved]
  - Asthenia [Unknown]
  - Fatigue [Unknown]
  - Hypotension [Unknown]
  - Throat irritation [Unknown]
  - Cough [Unknown]

NARRATIVE: CASE EVENT DATE: 20220401
